FAERS Safety Report 8297187-X (Version None)
Quarter: 2012Q2

REPORT INFORMATION
  Report Type: 
  Country: None (occurrence: None)
  Receive Date: 20120416
  Receipt Date: 20120405
  Transmission Date: 20120825
  Serious: Yes (Hospitalization)
  Sender: FDA-Public Use
  Company Number: 2012SP018990

PATIENT
  Sex: Female

DRUGS (5)
  1. VICTRELIS [Suspect]
     Indication: HEPATITIS C
  2. VICTRELIS [Suspect]
     Indication: DISEASE RECURRENCE
  3. INTERFERON (MANUFACTURER UNKNOWN) (INTERFERON ALFA-2B) [Suspect]
     Indication: DISEASE RECURRENCE
  4. INTERFERON (MANUFACTURER UNKNOWN) (INTERFERON ALFA-2B) [Suspect]
     Indication: HEPATITIS C
  5. RIBAVIRIN [Suspect]
     Indication: HEPATITIS C

REACTIONS (3)
  - TACHYCARDIA [None]
  - HYPERTENSION [None]
  - PANIC ATTACK [None]
